FAERS Safety Report 10192121 (Version 2)
Quarter: 2014Q2

REPORT INFORMATION
  Report Type: Spontaneous
  Country: US (occurrence: US)
  Receive Date: 20140523
  Receipt Date: 20140523
  Transmission Date: 20141212
  Serious: No
  Sender: FDA-Public Use
  Company Number: US-PFIZER INC-2014100991

PATIENT
  Age: 85 Year
  Sex: Male

DRUGS (2)
  1. ARGATROBAN [Suspect]
     Indication: HEPARIN-INDUCED THROMBOCYTOPENIA
     Dosage: 5.5 MG/5.5 ML PER HOUR
     Route: 041
     Dates: start: 20140408, end: 20140409
  2. ARGATROBAN [Suspect]
     Dosage: 7.7 MG/ 7.7 ML PER HOUR
     Route: 041
     Dates: start: 20140409

REACTIONS (3)
  - Extravasation [Recovered/Resolved with Sequelae]
  - Oedema [Not Recovered/Not Resolved]
  - Swelling [Not Recovered/Not Resolved]
